FAERS Safety Report 5975280-1 (Version None)
Quarter: 2008Q4

REPORT INFORMATION
  Report Type: 
  Country: None (occurrence: None)
  Receive Date: 20081202
  Receipt Date: 20081125
  Transmission Date: 20090506
  Serious: Yes (Other)
  Sender: FDA-Public Use
  Company Number: US-BAYER-200839539NA

PATIENT
  Age: 22 Year
  Sex: Female
  Weight: 79 kg

DRUGS (1)
  1. MIRENA [Suspect]
     Indication: CONTRACEPTION
     Route: 015
     Dates: start: 20071001, end: 20080901

REACTIONS (1)
  - ABORTION SPONTANEOUS [None]
